FAERS Safety Report 5269782-3 (Version None)
Quarter: 2007Q1

REPORT INFORMATION
  Report Type: 
  Country: None (occurrence: None)
  Receive Date: 20070320
  Receipt Date: 20070308
  Transmission Date: 20070707
  Serious: Yes (Hospitalization)
  Sender: FDA-Public Use
  Company Number: FR-ELI_LILLY_AND_COMPANY-FR200703001911

PATIENT
  Age: 82 Year
  Sex: Female

DRUGS (8)
  1. FORTEO [Suspect]
     Indication: OSTEOPOROSIS
     Dosage: 20 UG, DAILY (1/D)
     Route: 058
     Dates: start: 20050706, end: 20060601
  2. FORTEO [Suspect]
     Dosage: 20 UG, DAILY (1/D)
     Route: 058
     Dates: start: 20060701, end: 20070118
  3. RENITEC [Concomitant]
     Dosage: 1 D/F, DAILY (1/D)
     Route: 048
  4. MONOTILDIEM [Concomitant]
     Dosage: 2 D/F, DAILY (1/D)
     Route: 048
  5. PRAVASTATIN [Concomitant]
     Dosage: 1 D/F, DAILY (1/D)
     Route: 048
  6. ALLOPURINOL [Concomitant]
     Dosage: 1 D/F, DAILY (1/D)
     Route: 048
  7. ADANCOR [Concomitant]
     Dosage: 2 D/F, DAILY (1/D)
     Route: 048
  8. KARDEGIC [Concomitant]

REACTIONS (4)
  - ABSCESS INTESTINAL [None]
  - DIARRHOEA [None]
  - GENERAL PHYSICAL HEALTH DETERIORATION [None]
  - VOMITING [None]
